FAERS Safety Report 25425808 (Version 1)
Quarter: 2025Q2

REPORT INFORMATION
  Report Type: Spontaneous
  Country: CN (occurrence: CN)
  Receive Date: 20250611
  Receipt Date: 20250611
  Transmission Date: 20250716
  Serious: Yes (Hospitalization, Disabling)
  Sender: ABBVIE
  Company Number: CN-ABBVIE-6319040

PATIENT
  Age: 70 Year
  Sex: Female
  Weight: 62 kg

DRUGS (7)
  1. VENETOCLAX [Suspect]
     Active Substance: VENETOCLAX
     Indication: Acute myeloid leukaemia
     Route: 048
     Dates: start: 20250511, end: 20250511
  2. VENETOCLAX [Suspect]
     Active Substance: VENETOCLAX
     Indication: Acute myeloid leukaemia
     Route: 048
     Dates: start: 20250509, end: 20250510
  3. VENETOCLAX [Suspect]
     Active Substance: VENETOCLAX
     Indication: Acute myeloid leukaemia
     Route: 048
     Dates: start: 20250512, end: 20250531
  4. HYDROXYUREA [Concomitant]
     Active Substance: HYDROXYUREA
     Indication: Acute myeloid leukaemia
     Route: 048
     Dates: start: 20250429, end: 20250506
  5. HYDROXYUREA [Concomitant]
     Active Substance: HYDROXYUREA
     Indication: Acute myeloid leukaemia
     Route: 048
     Dates: start: 20250507, end: 20250508
  6. HYDROXYUREA [Concomitant]
     Active Substance: HYDROXYUREA
     Indication: Acute myeloid leukaemia
     Route: 048
     Dates: start: 20250508, end: 20250509
  7. AZACITIDINE [Suspect]
     Active Substance: AZACITIDINE
     Indication: Acute myeloid leukaemia
     Route: 058
     Dates: start: 20250509, end: 20250515

REACTIONS (1)
  - Myelosuppression [Recovering/Resolving]

NARRATIVE: CASE EVENT DATE: 20250511
